FAERS Safety Report 7857320-8 (Version None)
Quarter: 2011Q4

REPORT INFORMATION
  Report Type: 
  Country: None (occurrence: None)
  Receive Date: 20111027
  Receipt Date: 20111017
  Transmission Date: 20120403
  Serious: No
  Sender: FDA-Public Use
  Company Number: US-BIOGENIDEC-2011BI039765

PATIENT
  Sex: Female

DRUGS (2)
  1. TYSABRI [Suspect]
     Indication: MULTIPLE SCLEROSIS
     Route: 042
     Dates: start: 20110914
  2. AVONEX [Concomitant]
     Indication: MULTIPLE SCLEROSIS
     Route: 030
     Dates: start: 20030827

REACTIONS (8)
  - GENERAL PHYSICAL HEALTH DETERIORATION [None]
  - PARANOIA [None]
  - FEELING ABNORMAL [None]
  - NERVOUSNESS [None]
  - MUSCLE TIGHTNESS [None]
  - GAIT DISTURBANCE [None]
  - INFUSION SITE DISCOLOURATION [None]
  - DRUG INEFFECTIVE [None]
